FAERS Safety Report 10974360 (Version 1)
Quarter: 2015Q2

REPORT INFORMATION
  Report Type: Spontaneous
  Country: US (occurrence: US)
  Receive Date: 20150401
  Receipt Date: 20150401
  Transmission Date: 20150821
  Serious: Yes (Hospitalization, Other)
  Sender: FDA-Public Use
  Company Number: US-ASTRAZENECA-2015SE29593

PATIENT
  Age: 69 Year
  Sex: Male
  Weight: 79.4 kg

DRUGS (12)
  1. SIMVASTATIN. [Concomitant]
     Active Substance: SIMVASTATIN
     Indication: BLOOD CHOLESTEROL ABNORMAL
     Dosage: 20 OR 40 MG , DAILY
     Route: 048
     Dates: end: 20131011
  2. CELEXA GENERIC [Concomitant]
     Indication: STRESS
     Route: 048
     Dates: start: 201412
  3. EXFORGE [Concomitant]
     Active Substance: AMLODIPINE BESYLATE\VALSARTAN
     Indication: BLOOD PRESSURE ABNORMAL
     Dosage: 5/320 MG DAILY
     Route: 048
  4. CELEXA GENERIC [Concomitant]
     Indication: STRESS
     Dosage: 30 OR 40 MG DAILY
     Route: 048
     Dates: start: 2012
  5. MAGNESIUM [Concomitant]
     Active Substance: MAGNESIUM
     Indication: DRUG THERAPY
     Route: 048
     Dates: start: 201410
  6. NEXIUM [Suspect]
     Active Substance: ESOMEPRAZOLE MAGNESIUM
     Indication: GASTROOESOPHAGEAL REFLUX DISEASE
     Route: 048
     Dates: start: 20150312
  7. CELEBREX [Concomitant]
     Active Substance: CELECOXIB
     Indication: ARTHRITIS
     Route: 048
     Dates: start: 2014
  8. NEXIUM [Suspect]
     Active Substance: ESOMEPRAZOLE MAGNESIUM
     Indication: GASTROOESOPHAGEAL REFLUX DISEASE
     Route: 048
     Dates: start: 201501, end: 201502
  9. LIVALO [Concomitant]
     Active Substance: PITAVASTATIN CALCIUM
     Indication: BLOOD CHOLESTEROL ABNORMAL
     Route: 048
     Dates: start: 20131012
  10. TUMS [Concomitant]
     Active Substance: CALCIUM CARBONATE
     Indication: FLATULENCE
     Dosage: DAILY
     Route: 048
  11. NEXIUM [Suspect]
     Active Substance: ESOMEPRAZOLE MAGNESIUM
     Indication: GASTROOESOPHAGEAL REFLUX DISEASE
     Route: 048
     Dates: start: 2005, end: 20150310
  12. GAS-X [Concomitant]
     Active Substance: DIMETHICONE
     Indication: FLATULENCE
     Dosage: DAILY
     Route: 048

REACTIONS (13)
  - Hyperchlorhydria [Unknown]
  - Pain [Unknown]
  - Feeling abnormal [Unknown]
  - Abdominal distension [Unknown]
  - Off label use [Unknown]
  - Blood pressure decreased [Unknown]
  - Insomnia [Unknown]
  - Blood pressure increased [Unknown]
  - Arthritis [Unknown]
  - Polyp [Unknown]
  - Transient ischaemic attack [Unknown]
  - Blood pressure fluctuation [Unknown]
  - Chest pain [Unknown]

NARRATIVE: CASE EVENT DATE: 2011
